FAERS Safety Report 13451762 (Version 1)
Quarter: 2017Q2

REPORT INFORMATION
  Report Type: Spontaneous
  Country: US (occurrence: US)
  Receive Date: 20170418
  Receipt Date: 20170418
  Transmission Date: 20170830
  Serious: No
  Sender: FDA-Public Use
  Company Number: None

PATIENT
  Sex: Male

DRUGS (1)
  1. AZITHROMYCIN ANHYDROUS. [Suspect]
     Active Substance: AZITHROMYCIN ANHYDROUS
     Dates: start: 20170320, end: 20170322

REACTIONS (14)
  - Headache [None]
  - Insomnia [None]
  - Product formulation issue [None]
  - Abdominal pain [None]
  - Constipation [None]
  - Dyspepsia [None]
  - Product substitution issue [None]
  - Back pain [None]
  - Renal pain [None]
  - Abdominal distension [None]
  - Tinnitus [None]
  - Nephrolithiasis [None]
  - Urinary retention [None]
  - Balance disorder [None]

NARRATIVE: CASE EVENT DATE: 20170320
